FAERS Safety Report 24307144 (Version 3)
Quarter: 2024Q4

REPORT INFORMATION
  Report Type: Report from Study
  Country: US (occurrence: US)
  Receive Date: 20240911
  Receipt Date: 20241022
  Transmission Date: 20250115
  Serious: Yes (Hospitalization, Other)
  Sender: GILEAD
  Company Number: US-GILEAD-2024-0686731

PATIENT
  Age: 74 Year
  Sex: Female

DRUGS (1)
  1. SACITUZUMAB GOVITECAN-HZIY [Suspect]
     Active Substance: SACITUZUMAB GOVITECAN-HZIY
     Indication: Breast cancer female
     Dosage: 675 MG, OVER 1 HOUR ON DAYS 1 AND 8 EVERY 21 DAYS.
     Route: 042
     Dates: start: 20240325

REACTIONS (1)
  - Femur fracture [Not Recovered/Not Resolved]
